FAERS Safety Report 4999542-X (Version None)
Quarter: 2006Q2

REPORT INFORMATION
  Report Type: 
  Country: None (occurrence: None)
  Receive Date: 20060511
  Receipt Date: 20051206
  Transmission Date: 20061013
  Serious: Yes (Hospitalization, Disabling, Other)
  Sender: FDA-Public Use
  Company Number: US-MERCK-0512USA01024

PATIENT
  Age: 52 Year
  Sex: Male
  Weight: 113 kg

DRUGS (9)
  1. VIOXX [Suspect]
     Indication: BACK PAIN
     Route: 048
     Dates: start: 20010101, end: 20041001
  2. VIOXX [Suspect]
     Indication: ARTHRITIS
     Route: 048
     Dates: start: 20010101, end: 20041001
  3. NEURONTIN [Concomitant]
     Route: 065
  4. KLONOPIN [Concomitant]
     Route: 065
  5. HYDROCODONE BITARTRATE [Concomitant]
     Route: 065
  6. VASOTEC [Concomitant]
     Route: 065
  7. LIPITOR [Concomitant]
     Route: 065
  8. LOPID [Concomitant]
     Route: 065
  9. HUMULIN [Concomitant]
     Route: 065

REACTIONS (17)
  - ABDOMINAL PAIN UPPER [None]
  - ANIMAL BITE [None]
  - CELLULITIS [None]
  - CEREBROVASCULAR ACCIDENT [None]
  - CONFUSIONAL STATE [None]
  - DEPRESSION [None]
  - DRUG ABUSER [None]
  - ERECTILE DYSFUNCTION [None]
  - HYPOGLYCAEMIA [None]
  - LOCALISED INFECTION [None]
  - MUSCULAR WEAKNESS [None]
  - OSTEOMYELITIS [None]
  - PAIN IN EXTREMITY [None]
  - PHLEBITIS [None]
  - SCRATCH [None]
  - SINUSITIS [None]
  - TRANSIENT ISCHAEMIC ATTACK [None]
